FAERS Safety Report 7872555 (Version 1)
Quarter: 2020Q3

REPORT INFORMATION
  Report Type: Report from Study
  Country: US (occurrence: US)
  Receive Date: 20110325
  Receipt Date: 20110325
  Transmission Date: 20201105
  Serious: Yes (Life-Threatening, Hospitalization)
  Sender: FDA-Public Use
  Company Number: US-JNJFOC-20110307327

PATIENT
  Age: 79 Year
  Sex: Male
  Weight: 112.5 kg

DRUGS (54)
  1. ATENOLOL. [Concomitant]
     Active Substance: ATENOLOL
     Route: 048
  2. VITAMIN B6 [Concomitant]
     Active Substance: PYRIDOXINE HYDROCHLORIDE
     Route: 048
  3. CHOLINE [Concomitant]
     Active Substance: CHOLINE
     Route: 048
  4. BIOFLAVONOIDS [Concomitant]
     Route: 048
  5. QUERCETIN [Concomitant]
     Active Substance: QUERCETIN
  6. VITAMIN C [Concomitant]
     Active Substance: ASCORBIC ACID
     Route: 048
  7. PANTOTHENIC ACID [Concomitant]
     Active Substance: PANTOTHENIC ACID
     Route: 048
  8. MAGNESIUM [Concomitant]
     Active Substance: MAGNESIUM
     Route: 048
  9. POTASSIUM [Concomitant]
     Active Substance: POTASSIUM
     Route: 048
  10. BETAINE [Concomitant]
     Active Substance: BETAINE
     Route: 048
  11. SILICON DIOXIDE, COLLOIDAL [Concomitant]
     Active Substance: SILICON DIOXIDE
     Route: 048
  12. VITAMIN B12 [Concomitant]
     Active Substance: CYANOCOBALAMIN
     Route: 048
  13. NIACIN. [Concomitant]
     Active Substance: NIACIN
     Route: 048
  14. CALCIUM [Concomitant]
     Active Substance: CALCIUM
     Route: 048
  15. COPPER [Concomitant]
     Active Substance: COPPER
     Route: 048
  16. MANGANESE [Concomitant]
     Active Substance: MANGANESE CHLORIDE
     Route: 048
  17. BILBERRY EXTRACT [Concomitant]
     Route: 048
  18. OMEGA?3 FATTY ACIDS [Concomitant]
     Active Substance: OMEGA-3 FATTY ACIDS
     Route: 048
  19. LUTEIN [Concomitant]
     Route: 048
  20. ARICEPT [Concomitant]
     Active Substance: DONEPEZIL HYDROCHLORIDE
     Route: 048
  21. ALLOPURINOL. [Concomitant]
     Active Substance: ALLOPURINOL
     Route: 048
  22. VITAMIN D2 [Concomitant]
     Active Substance: ERGOCALCIFEROL
     Route: 048
  23. FOLIC ACID. [Concomitant]
     Active Substance: FOLIC ACID
     Route: 048
  24. IODINE. [Concomitant]
     Active Substance: IODINE
     Route: 048
  25. CHROMIC CHLORIDE. [Concomitant]
     Active Substance: CHROMIC CHLORIDE
     Route: 048
  26. BENTONITE [Concomitant]
     Active Substance: BENTONITE
     Route: 048
  27. TAURINE [Concomitant]
     Active Substance: TAURINE
     Route: 048
  28. GLYCINE. [Concomitant]
     Active Substance: GLYCINE
     Route: 048
  29. DOCOSAHEXAENOIC ACID [Concomitant]
     Route: 048
  30. EICOSAPENTAENOIC ACID [Concomitant]
  31. RIBOFLAVIN [Concomitant]
     Active Substance: RIBOFLAVIN
     Route: 048
  32. INOSITOL [Concomitant]
     Active Substance: INOSITOL
     Route: 048
  33. LYCOPENE [Concomitant]
     Active Substance: LYCOPENE
     Route: 048
  34. ANTIOXIDANT NOS [Concomitant]
     Route: 048
  35. THIAMINE HYDROCHLORIDE. [Concomitant]
     Active Substance: THIAMINE HYDROCHLORIDE
     Route: 048
  36. BETAINE HYDROCHLORIDE [Concomitant]
     Active Substance: BETAINE HYDROCHLORIDE
     Route: 048
  37. ACETYLCYSTEINE. [Concomitant]
     Active Substance: ACETYLCYSTEINE
     Route: 048
  38. GINKGO BILOBA LEAF EXTRACT [Concomitant]
     Active Substance: GINKGO BILOBA LEAF EXTRACT
     Route: 048
  39. USTEKINUMAB [Suspect]
     Active Substance: USTEKINUMAB
     Route: 058
  40. VITAMIN A [Concomitant]
     Active Substance: VITAMIN A
     Route: 048
  41. TOCOPHEROL [Concomitant]
     Active Substance: TOCOPHEROL
     Route: 048
  42. SELENIUM [Concomitant]
     Active Substance: SELENIUM
     Route: 048
  43. AMINOBENZOIC ACID [Concomitant]
     Active Substance: AMINOBENZOIC ACID
     Route: 048
  44. DAUCUS CAROTA EXTRACT [Concomitant]
     Route: 048
  45. EUPHRASIA EXTRACT [Concomitant]
     Route: 048
  46. ZEAXANTHIN [Concomitant]
     Route: 048
  47. FISH OIL [Concomitant]
     Active Substance: FISH OIL
     Route: 048
  48. PHOSPHATIDYL CHOLINE [Concomitant]
     Route: 048
  49. USTEKINUMAB [Suspect]
     Active Substance: USTEKINUMAB
     Indication: PSORIASIS
     Route: 058
  50. ZINC. [Concomitant]
     Active Substance: ZINC
     Route: 048
  51. L?LYSINE AESCINATE [Concomitant]
     Route: 048
  52. PHOSPHATIDYL CHOLINE [Concomitant]
     Route: 048
  53. GLUTAMIC ACID [Concomitant]
     Active Substance: GLUTAMIC ACID
     Route: 048
  54. MEMANTINE HYDROCHLORIDE. [Concomitant]
     Active Substance: MEMANTINE HYDROCHLORIDE
     Route: 048

REACTIONS (2)
  - Syncope [Recovered/Resolved]
  - Sinus bradycardia [Recovered/Resolved]

NARRATIVE: CASE EVENT DATE: 20110203
